FAERS Safety Report 23362169 (Version 1)
Quarter: 2024Q1

REPORT INFORMATION
  Report Type: Report from Study
  Country: CA (occurrence: CA)
  Receive Date: 20240103
  Receipt Date: 20240103
  Transmission Date: 20240409
  Serious: Yes (Hospitalization)
  Sender: FDA-Public Use
  Company Number: CA-HLS-202302822

PATIENT
  Sex: Male

DRUGS (2)
  1. CLOZARIL [Suspect]
     Active Substance: CLOZAPINE
     Indication: Schizophrenia
     Dosage: 100 MG EVERY BED TIME
     Route: 048
     Dates: start: 20190917
  2. CLOZARIL [Suspect]
     Active Substance: CLOZAPINE
     Indication: Schizophrenia
     Dosage: RESTARTED DEC 4TH 2023
     Route: 048

REACTIONS (6)
  - Neutrophil count increased [Unknown]
  - Therapy interrupted [Unknown]
  - Psychiatric decompensation [Unknown]
  - Platelet count decreased [Unknown]
  - Psychotic disorder [Unknown]
  - White blood cell count increased [Unknown]
